FAERS Safety Report 24070591 (Version 1)
Quarter: 2024Q3

REPORT INFORMATION
  Report Type: Report from Study
  Country: AU (occurrence: AU)
  Receive Date: 20240710
  Receipt Date: 20240710
  Transmission Date: 20241017
  Serious: No
  Sender: ROCHE
  Company Number: AU-ROCHE-3149656

PATIENT
  Age: 59 Year
  Sex: Male
  Weight: 86.7 kg

DRUGS (6)
  1. ALECTINIB [Suspect]
     Active Substance: ALECTINIB
     Indication: Non-small cell lung cancer
     Route: 048
     Dates: start: 20220118
  2. ALECTINIB [Suspect]
     Active Substance: ALECTINIB
     Route: 048
     Dates: start: 20190805
  3. CORE MINERALS [Concomitant]
     Dosage: 2 TABLET
     Route: 048
  4. HEPAPLUS [Concomitant]
     Dosage: 1 TABLET
     Route: 048
  5. BIOMEGA [Concomitant]
     Active Substance: CAPSAICIN
     Dosage: 2 TABLET
     Route: 048
  6. PALMETTO PLUS [Concomitant]
     Dosage: 1 TABLET
     Route: 048

REACTIONS (1)
  - Alanine aminotransferase increased [Recovered/Resolved]

NARRATIVE: CASE EVENT DATE: 20220715
